FAERS Safety Report 8749061 (Version 3)
Quarter: 2013Q2

REPORT INFORMATION
  Report Type: Spontaneous
  Country: US (occurrence: None)
  Receive Date: 20120801
  Receipt Date: 20130418
  Transmission Date: 20140414
  Serious: Yes (Death, Hospitalization)
  Sender: FDA-Public Use
  Company Number: 2012PROUSA01717

PATIENT
  Age: 81 Year
  Sex: Male
  Weight: 79.4 kg

DRUGS (22)
  1. PROVENGE [Suspect]
     Indication: PROSTATE CANCER METASTATIC
     Route: 042
     Dates: start: 20120625, end: 20120625
  2. MELOXICAM [Concomitant]
  3. PROAIR (SALBUTAMOL SULFATE) [Concomitant]
  4. VITAMIN E (TOCOPHERYL ACETATE) [Concomitant]
  5. LEVOFLOXACIN (LEVOFLOXACIN HEMIHYDRATE) [Concomitant]
  6. PROTONIX [Concomitant]
  7. MORPHINE [Concomitant]
  8. ZOFRAN [Concomitant]
  9. PROMETHAZINE HYDROCHLORIDE [Concomitant]
  10. HYDRALAZINE (HYDRALAZINE HYDROCHLORIDE) [Concomitant]
  11. PROSCAR [Concomitant]
  12. AMBIEN [Concomitant]
  13. LACTULOSE [Concomitant]
  14. POTASSIUM (POTASSIUM) [Concomitant]
  15. CLONIDINE TRANSDERMAL SYSTEM [Concomitant]
  16. OXYCODONE (OXYCODONE) [Concomitant]
  17. MISOPROSTOL [Concomitant]
  18. XIFAXAN (RIFAXIMIN) [Concomitant]
  19. INSULIN (INSULIN PORCINE) [Concomitant]
  20. VANTUS (ATORVASTATIN CALCIUM) [Concomitant]
  21. CASODEX (BICALUTAMIDE) [Concomitant]
  22. AVODART (DUTASTERIDE) [Concomitant]

REACTIONS (13)
  - Malignant neoplasm progression [None]
  - Cough [None]
  - Speech disorder [None]
  - Bowel movement irregularity [None]
  - Hepatic failure [None]
  - Prostate cancer metastatic [None]
  - Blood potassium increased [None]
  - Myelodysplastic syndrome [None]
  - Disseminated intravascular coagulation [None]
  - Dyspnoea [None]
  - Pain [None]
  - Body temperature increased [None]
  - Disease progression [None]
